FAERS Safety Report 15467164 (Version 3)
Quarter: 2018Q4

REPORT INFORMATION
  Report Type: Report from Study
  Country: DE (occurrence: DE)
  Receive Date: 20181005
  Receipt Date: 20181112
  Transmission Date: 20190204
  Serious: Yes (Congenital Anomaly, Other)
  Sender: FDA-Public Use
  Company Number: DE-AUROBINDO-AUR-APL-2018-048508

PATIENT
  Sex: Female
  Weight: 2.43 kg

DRUGS (2)
  1. BISOPROLOL [Concomitant]
     Active Substance: BISOPROLOL
     Indication: HYPERTENSION
     Dosage: UNK
     Route: 064
  2. LOSARTAN. [Suspect]
     Active Substance: LOSARTAN
     Indication: HYPERTENSION
     Dosage: UNK
     Route: 064

REACTIONS (8)
  - Foetal exposure during pregnancy [Unknown]
  - Atrial septal defect [Unknown]
  - Umbilical hernia [Unknown]
  - Congenital umbilical hernia [Unknown]
  - Talipes [Unknown]
  - Accidental exposure to product [Unknown]
  - Patent ductus arteriosus [Unknown]
  - Low birth weight baby [Unknown]
